FAERS Safety Report 8113334-4 (Version None)
Quarter: 2012Q1

REPORT INFORMATION
  Report Type: 
  Country: None (occurrence: None)
  Receive Date: 20120203
  Receipt Date: 20120130
  Transmission Date: 20120608
  Serious: Yes (Hospitalization)
  Sender: FDA-Public Use
  Company Number: PHEH2012US002690

PATIENT
  Sex: Female

DRUGS (1)
  1. GILENYA [Suspect]
     Route: 048
     Dates: start: 20120110

REACTIONS (2)
  - ABDOMINAL DISCOMFORT [None]
  - SOMNOLENCE [None]
